FAERS Safety Report 17491024 (Version 1)
Quarter: 2020Q1

REPORT INFORMATION
  Report Type: Report from Study
  Country: US (occurrence: US)
  Receive Date: 20200303
  Receipt Date: 20200303
  Transmission Date: 20200409
  Serious: Yes (Death)
  Sender: FDA-Public Use
  Company Number: US-PFIZER INC-2020087895

PATIENT

DRUGS (2)
  1. CARBOPLATIN. [Suspect]
     Active Substance: CARBOPLATIN
     Indication: BRAIN NEOPLASM
     Dosage: UNK
  2. THIOTEPA. [Suspect]
     Active Substance: THIOTEPA
     Indication: BRAIN NEOPLASM
     Dosage: UNK

REACTIONS (1)
  - Nephropathy toxic [Fatal]
